FAERS Safety Report 14215069 (Version 2)
Quarter: 2018Q1

REPORT INFORMATION
  Report Type: Spontaneous
  Country: US (occurrence: US)
  Receive Date: 20171122
  Receipt Date: 20180118
  Transmission Date: 20180508
  Serious: No
  Sender: FDA-Public Use
  Company Number: US-JNJFOC-20170922684

PATIENT
  Age: 40 Year
  Sex: Male

DRUGS (2)
  1. KETOCONAZOLE 2 PERCENT [Suspect]
     Active Substance: KETOCONAZOLE
     Indication: PRURITUS
     Route: 061
  2. KETOCONAZOLE 2 PERCENT [Suspect]
     Active Substance: KETOCONAZOLE
     Indication: SKIN LESION
     Route: 061

REACTIONS (3)
  - Product container seal issue [Unknown]
  - Product use in unapproved indication [Unknown]
  - Product odour abnormal [Unknown]

NARRATIVE: CASE EVENT DATE: 201709
